FAERS Safety Report 15270374 (Version 1)
Quarter: 2018Q3

REPORT INFORMATION
  Report Type: Spontaneous
  Country: US (occurrence: US)
  Receive Date: 20180726
  Receipt Date: 20180726
  Transmission Date: 20181010
  Serious: No
  Sender: FDA-Public Use
  Company Number: None

PATIENT
  Age: 55 Year
  Sex: Male
  Weight: 95.25 kg

DRUGS (1)
  1. FOSAMPRENAVIR CALCIUM. [Suspect]
     Active Substance: FOSAMPRENAVIR CALCIUM
     Route: 048
     Dates: start: 20171004

REACTIONS (3)
  - Nausea [None]
  - Product substitution issue [None]
  - Vomiting [None]

NARRATIVE: CASE EVENT DATE: 20171004
